FAERS Safety Report 6436150-8 (Version None)
Quarter: 2009Q4

REPORT INFORMATION
  Report Type: 
  Country: None (occurrence: None)
  Receive Date: 20091111
  Receipt Date: 20091029
  Transmission Date: 20100525
  Serious: Yes (Death, Hospitalization)
  Sender: FDA-Public Use
  Company Number: DE-ROCHE-664376

PATIENT
  Sex: Male
  Weight: 79 kg

DRUGS (3)
  1. CAPECITABINE [Suspect]
     Dosage: FREQUENCY: DAY 1-DAY 14; LAST DOSE PRIOR TO SAE: 13 OCTOBER 2009
     Route: 048
     Dates: start: 20081122
  2. DOCETAXEL [Suspect]
     Dosage: FREQUENCY: DAY 1, DAY 8 EVERY 21 DAYS; LAST DOSE PRIOR TO SAE: 07 OCTOBER 2009
     Route: 042
     Dates: start: 20081122
  3. OXALIPLATIN [Suspect]
     Dosage: FREQUENCY: DAY 1, DAY 8 EVERY 21 DAYS, LAST DOSE PRIOR TO SAE: 17 SEPTEMBER 2009
     Route: 042
     Dates: start: 20081122

REACTIONS (5)
  - CHOLECYSTITIS [None]
  - FATIGUE [None]
  - HEPATIC FAILURE [None]
  - HYPONATRAEMIA [None]
  - RENAL FAILURE [None]
